FAERS Safety Report 7248226-6 (Version None)
Quarter: 2011Q1

REPORT INFORMATION
  Report Type: 
  Country: None (occurrence: None)
  Receive Date: 20110127
  Receipt Date: 20101005
  Transmission Date: 20110831
  Serious: Yes (Hospitalization, Other)
  Sender: FDA-Public Use
  Company Number: US-BAYER-200939489NA

PATIENT
  Sex: Female
  Weight: 65 kg

DRUGS (4)
  1. IMITREX [Concomitant]
  2. PHENERGAN [Concomitant]
  3. YASMIN [Suspect]
     Indication: ORAL CONTRACEPTION
     Dosage: 1 CI (DAILY DOSE), QD, ORAL
     Route: 048
     Dates: start: 20051101
  4. TRAMADOC [Concomitant]

REACTIONS (8)
  - CEREBRAL INFARCTION [None]
  - VISION BLURRED [None]
  - HYPERACUSIS [None]
  - PAIN [None]
  - MIGRAINE [None]
  - NAUSEA [None]
  - CEREBROVASCULAR ACCIDENT [None]
  - PHOTOPHOBIA [None]
